FAERS Safety Report 12881970 (Version 1)
Quarter: 2016Q4

REPORT INFORMATION
  Report Type: Spontaneous
  Country: US (occurrence: US)
  Receive Date: 20161025
  Receipt Date: 20161025
  Transmission Date: 20170207
  Serious: No
  Sender: FDA-Public Use
  Company Number: US-ASTRAZENECA-2016SF08584

PATIENT
  Age: 56 Year
  Sex: Male
  Weight: 108 kg

DRUGS (1)
  1. SYMBICORT [Suspect]
     Active Substance: BUDESONIDE\FORMOTEROL FUMARATE DIHYDRATE
     Indication: ASTHMA
     Dosage: 160/4.5 MCG, 1 PUFF DAILY IN AM
     Route: 055
     Dates: start: 2014

REACTIONS (13)
  - Snoring [Unknown]
  - Cough [Unknown]
  - Weight decreased [Unknown]
  - Dyspnoea [Unknown]
  - Dysphagia [Unknown]
  - Fatigue [Unknown]
  - Pharyngeal oedema [Unknown]
  - Off label use [Unknown]
  - Decreased appetite [Unknown]
  - Heart rate abnormal [Unknown]
  - Cataract [Unknown]
  - Hypoaesthesia [Unknown]
  - Vomiting [Unknown]

NARRATIVE: CASE EVENT DATE: 2014
